FAERS Safety Report 9500602 (Version 1)
Quarter: 2013Q3

REPORT INFORMATION
  Report Type: Report from Study
  Country: US (occurrence: US)
  Receive Date: 20130905
  Receipt Date: 20130905
  Transmission Date: 20140515
  Serious: Yes (Hospitalization)
  Sender: FDA-Public Use
  Company Number: US-MALLINCKRODT-T201304241

PATIENT
  Age: 73 Year
  Sex: Female
  Weight: 78.5 kg

DRUGS (9)
  1. OPTIRAY [Suspect]
     Indication: PERCUTANEOUS CORONARY INTERVENTION
     Dosage: 300 ML, UNK
     Route: 042
     Dates: start: 20120711, end: 20120711
  2. OPTIRAY [Suspect]
     Indication: ARTERIOGRAM CORONARY
  3. ANGIOX [Suspect]
     Indication: PERCUTANEOUS CORONARY INTERVENTION
     Dosage: 0.75 MG/KG BOLUS
     Route: 042
     Dates: start: 20120711, end: 20120711
  4. ANGIOX [Suspect]
     Dosage: 1.75 MG/KG/HR INFUSION
     Route: 042
     Dates: start: 20120711, end: 20120711
  5. ANGIOX [Suspect]
     Dosage: 0.25 MG/KG/HR INFUSION
     Route: 042
     Dates: start: 20120711, end: 20120711
  6. ASPIRIN [Concomitant]
     Dosage: 162 MG, PRE-PROCEDURE
     Dates: start: 20120711, end: 20120711
  7. ASPIRIN [Concomitant]
     Dosage: UNK, POST PROCEDURE
  8. CLOPIDOGREL [Concomitant]
     Dosage: 600 MG, PRE-PROCEDURE
     Dates: start: 20120711, end: 20120711
  9. CLOPIDOGREL [Concomitant]
     Dosage: UNK, POST PROCEDURE

REACTIONS (1)
  - Nephropathy toxic [Recovering/Resolving]
